FAERS Safety Report 11808554 (Version 1)
Quarter: 2015Q4

REPORT INFORMATION
  Report Type: Spontaneous
  Country: CH (occurrence: CH)
  Receive Date: 20151207
  Receipt Date: 20151207
  Transmission Date: 20160305
  Serious: Yes (Hospitalization, Other)
  Sender: FDA-Public Use
  Company Number: CH-009507513-1512CHE002609

PATIENT
  Age: 69 Year
  Sex: Male
  Weight: 76 kg

DRUGS (5)
  1. TARGIN [Concomitant]
     Active Substance: NALOXONE HYDROCHLORIDE\OXYCODONE HYDROCHLORIDE
     Indication: PAIN
     Dosage: 1 PER DAY 40MG/20MG
     Route: 048
     Dates: start: 20150311
  2. REMERON [Concomitant]
     Active Substance: MIRTAZAPINE
     Dosage: 1 PER DAY
     Route: 048
     Dates: start: 20150903
  3. PANTOZOL [Concomitant]
     Active Substance: PANTOPRAZOLE SODIUM
     Dosage: 1 PER DAY
     Route: 048
     Dates: start: 20150227
  4. KEYTRUDA [Suspect]
     Active Substance: PEMBROLIZUMAB
     Indication: MALIGNANT NEOPLASM OF PLEURA METASTATIC
     Dosage: UNK UNK, UNKNOWN
     Route: 042
     Dates: start: 20151005
  5. METHADONE HYDROCHLORIDE. [Concomitant]
     Active Substance: METHADONE HYDROCHLORIDE
     Indication: PAIN
     Dosage: 5MG 1 PER 2 DAYS,
     Route: 048
     Dates: start: 20150903

REACTIONS (1)
  - Supraventricular tachycardia [Unknown]

NARRATIVE: CASE EVENT DATE: 20151008
